FAERS Safety Report 6803999-9 (Version None)
Quarter: 2010Q2

REPORT INFORMATION
  Report Type: 
  Country: None (occurrence: None)
  Receive Date: 20100628
  Receipt Date: 20060805
  Transmission Date: 20101027
  Serious: Yes (Other)
  Sender: FDA-Public Use
  Company Number: US-PFIZER INC-2006084541

PATIENT
  Sex: Male
  Weight: 70.76 kg

DRUGS (3)
  1. SUTENT [Suspect]
     Indication: DRUG USE FOR UNKNOWN INDICATION
     Dosage: DAILY - INTERVAL:  28 DAYS
     Route: 065
     Dates: start: 20060622, end: 20060629
  2. CENTRUM SILVER [Concomitant]
     Route: 065
  3. PROSCAR [Concomitant]
     Route: 065

REACTIONS (5)
  - BLOOD PRESSURE INCREASED [None]
  - DYSPNOEA [None]
  - INSOMNIA [None]
  - PAIN IN EXTREMITY [None]
  - PRURITUS [None]
